FAERS Safety Report 26172005 (Version 1)
Quarter: 2025Q4

REPORT INFORMATION
  Report Type: Spontaneous
  Country: CN (occurrence: CN)
  Receive Date: 20251217
  Receipt Date: 20251217
  Transmission Date: 20260118
  Serious: Yes (Other)
  Sender: ABBVIE
  Company Number: CN-ABBVIE-6590367

PATIENT
  Age: 53 Year
  Sex: Female

DRUGS (2)
  1. VENETOCLAX [Suspect]
     Active Substance: VENETOCLAX
     Indication: Myelosuppression
     Route: 048
     Dates: start: 20251128, end: 20251204
  2. AZACITIDINE [Suspect]
     Active Substance: AZACITIDINE
     Indication: Myelosuppression
     Route: 058
     Dates: start: 20251128, end: 20251204

REACTIONS (1)
  - Myelosuppression [Unknown]

NARRATIVE: CASE EVENT DATE: 20251202
